FAERS Safety Report 7935428-6 (Version None)
Quarter: 2011Q4

REPORT INFORMATION
  Report Type: 
  Country: None (occurrence: None)
  Receive Date: 20111122
  Receipt Date: 20111118
  Transmission Date: 20120403
  Serious: Yes (Hospitalization)
  Sender: FDA-Public Use
  Company Number: US-JNJFOC-20111101117

PATIENT
  Sex: Male
  Weight: 107.05 kg

DRUGS (2)
  1. XARELTO [Suspect]
     Indication: ILL-DEFINED DISORDER
     Route: 065
  2. PERCOCET [Suspect]
     Indication: ILL-DEFINED DISORDER
     Route: 065

REACTIONS (1)
  - DELIRIUM [None]
